FAERS Safety Report 23213791 (Version 1)
Quarter: 2023Q4

REPORT INFORMATION
  Report Type: Spontaneous
  Country: IT (occurrence: IT)
  Receive Date: 20231121
  Receipt Date: 20231121
  Transmission Date: 20240110
  Serious: Yes (Hospitalization, Other)
  Sender: FDA-Public Use
  Company Number: None

PATIENT
  Age: 52 Year
  Sex: Male

DRUGS (5)
  1. KEYTRUDA [Suspect]
     Active Substance: PEMBROLIZUMAB
     Indication: Malignant melanoma
     Dosage: FROM 9/23/2019 200MG EVERY 21 DAYS TO 04/20/2020, THEN SWITCHES TO EVERY 42 DAYS SCHEDULE
     Route: 042
     Dates: start: 20200525, end: 20230829
  2. LEVOTHYROXINE SODIUM [Concomitant]
     Active Substance: LEVOTHYROXINE SODIUM
     Dosage: 100 MICROGRAM, Q24H
     Route: 048
  3. WYNZORA [Concomitant]
     Active Substance: BETAMETHASONE DIPROPIONATE\CALCIPOTRIENE
     Dosage: 1 APPLICATION/DAY
     Route: 003
     Dates: start: 20231023
  4. ZINC SULFATE [Concomitant]
     Active Substance: ZINC SULFATE
     Dosage: 200 MILLIGRAM, Q24H
     Route: 048
  5. FOSINOPRIL SODIUM [Concomitant]
     Active Substance: FOSINOPRIL SODIUM
     Dosage: 10 MILLIGRAM, Q24H
     Route: 048

REACTIONS (2)
  - Hyperbilirubinaemia [Recovering/Resolving]
  - Hypertransaminasaemia [Recovering/Resolving]

NARRATIVE: CASE EVENT DATE: 20231009
